FAERS Safety Report 9023652 (Version 1)
Quarter: 2013Q1

REPORT INFORMATION
  Report Type: Report from Study
  Country: PL (occurrence: PL)
  Receive Date: 20130121
  Receipt Date: 20130121
  Transmission Date: 20140127
  Serious: Yes (Hospitalization)
  Sender: FDA-Public Use
  Company Number: PL-BAXTER-2013BAX002342

PATIENT
  Age: 68 None
  Sex: Male
  Weight: 59 kg

DRUGS (3)
  1. ENDOXAN 50 MG, COMPRIM? ENROB? [Suspect]
     Indication: CHRONIC LYMPHOCYTIC LEUKAEMIA
     Dosage: 400
     Route: 048
     Dates: start: 20110528, end: 20110807
  2. RITUXIMAB [Suspect]
     Indication: CHRONIC LYMPHOCYTIC LEUKAEMIA
     Dosage: 600
     Route: 042
     Dates: start: 20110528, end: 20110805
  3. FLUDARABINE [Suspect]
     Indication: CHRONIC LYMPHOCYTIC LEUKAEMIA
     Dosage: 50
     Route: 048
     Dates: start: 20110528, end: 20110807

REACTIONS (2)
  - Agranulocytosis [Recovered/Resolved]
  - Pneumonia [Recovered/Resolved]
